FAERS Safety Report 10020588 (Version 1)
Quarter: 2014Q1

REPORT INFORMATION
  Report Type: Spontaneous
  Country: FI (occurrence: FI)
  Receive Date: 20140319
  Receipt Date: 20140319
  Transmission Date: 20141002
  Serious: Yes (Other)
  Sender: FDA-Public Use
  Company Number: 2013SP007885

PATIENT
  Age: 61 Year
  Sex: Male

DRUGS (17)
  1. RIFAMPICIN [Suspect]
     Indication: DEVICE RELATED INFECTION
  2. PANTOPRAZOLE [Suspect]
     Indication: PRODUCT USED FOR UNKNOWN INDICATION
  3. VANCOMYCIN [Suspect]
     Indication: DEVICE RELATED INFECTION
  4. MEROPENEM [Suspect]
     Indication: PRODUCT USED FOR UNKNOWN INDICATION
  5. CEFUROXIME [Suspect]
     Indication: DEVICE RELATED INFECTION
  6. METRONIDAZOLE [Suspect]
     Indication: PYREXIA
  7. CLOXACILLIN [Suspect]
     Indication: DEVICE RELATED INFECTION
  8. LEVOFLOXACIN [Concomitant]
     Indication: DEVICE RELATED INFECTION
  9. NAPROXEN [Concomitant]
  10. PIPERACILLIN/TAZOBACTAM [Concomitant]
  11. PARACETAMOL [Concomitant]
  12. CODEINE PHOSPHATE [Concomitant]
  13. METHYLPREDNISOLONE [Concomitant]
  14. METHYLPREDNISOLONE [Concomitant]
  15. METHYLPREDNISOLONE [Concomitant]
  16. DAPTOMYCIN [Concomitant]
  17. IMMUNOGLOBULIN [Concomitant]
     Route: 042

REACTIONS (7)
  - Drug reaction with eosinophilia and systemic symptoms [Recovering/Resolving]
  - Pyrexia [Recovering/Resolving]
  - Rash erythematous [Recovering/Resolving]
  - Leukocytosis [Recovering/Resolving]
  - Eosinophilia [Recovering/Resolving]
  - Toxic epidermal necrolysis [Recovering/Resolving]
  - Blister [Recovering/Resolving]
